FAERS Safety Report 18387528 (Version 3)
Quarter: 2020Q4

REPORT INFORMATION
  Report Type: Report from Study
  Country: US (occurrence: US)
  Receive Date: 20201015
  Receipt Date: 20201127
  Transmission Date: 20210114
  Serious: No
  Sender: FDA-Public Use
  Company Number: NVSC2020US269817

PATIENT
  Age: 83 Year
  Sex: Male

DRUGS (1)
  1. COSENTYX [Suspect]
     Active Substance: SECUKINUMAB
     Indication: BLISTER
     Route: 058

REACTIONS (2)
  - Product use in unapproved indication [Unknown]
  - Blister [Unknown]

NARRATIVE: CASE EVENT DATE: 202009
